FAERS Safety Report 10150326 (Version 1)
Quarter: 2014Q2

REPORT INFORMATION
  Report Type: Spontaneous
  Country: US (occurrence: US)
  Receive Date: 20140502
  Receipt Date: 20140502
  Transmission Date: 20141212
  Serious: Yes (Hospitalization)
  Sender: FDA-Public Use
  Company Number: US-B.I. PHARMACEUTICALS,INC./RIDGEFIELD-2014-BI-19434BP

PATIENT
  Sex: Female

DRUGS (4)
  1. JENTADUETO [Suspect]
     Indication: TYPE 2 DIABETES MELLITUS
     Dosage: STRENGTH: 2.5 MG / 500 MG; DAILY DOSE: 5 MG/ 1000 MG
     Route: 048
     Dates: start: 201306, end: 201401
  2. EFFEXOR [Concomitant]
     Indication: DEPRESSION
     Dosage: 225 MG
     Route: 048
     Dates: end: 201401
  3. LANTUS [Concomitant]
     Indication: TYPE 2 DIABETES MELLITUS
     Dosage: FORMULATION: SUBCUTANEOUS; STRENGTH: 75 UNITS; DAILY DOSE: 75 UNITS
     Route: 058
     Dates: end: 201401
  4. LIPITOR [Concomitant]
     Indication: BLOOD CHOLESTEROL INCREASED
     Dosage: 40 MG
     Route: 048
     Dates: end: 201401

REACTIONS (3)
  - Pancreatitis acute [Recovered/Resolved]
  - Amylase increased [Unknown]
  - Weight decreased [Unknown]
